FAERS Safety Report 19025705 (Version 1)
Quarter: 2021Q1

REPORT INFORMATION
  Report Type: Spontaneous
  Country: NO (occurrence: NO)
  Receive Date: 20210318
  Receipt Date: 20210318
  Transmission Date: 20210420
  Serious: Yes (Life-Threatening, Hospitalization, Other)
  Sender: FDA-Public Use
  Company Number: NO-ACCORD-219855

PATIENT
  Age: 51 Year
  Sex: Female
  Weight: 69 kg

DRUGS (5)
  1. IMOVANE [Concomitant]
     Active Substance: ZOPICLONE
     Indication: INSOMNIA
     Dosage: STRENGTH: 7.5 MG MILLIGRAM(S)
  2. QUETIAPINE ACCORD [Suspect]
     Active Substance: QUETIAPINE
     Indication: AFFECT LABILITY
     Dosage: STRENGTH: 200 MG MILLIGRAM(S)?INCREASED FROM 25 MG TO 400 MG IN 4?6 WEEKS
     Dates: start: 20171204
  3. QUETIAPINE. [Suspect]
     Active Substance: QUETIAPINE
     Indication: AFFECT LABILITY
     Route: 048
  4. VALLERGAN [Concomitant]
     Active Substance: TRIMEPRAZINE
     Indication: INSOMNIA
     Dosage: 10 MG MILLIGRAM(S)
  5. SOBRIL [Concomitant]
     Active Substance: OXAZEPAM
     Indication: INSOMNIA
     Dosage: 15 MG MILLIGRAM(S)

REACTIONS (4)
  - Cardiac discomfort [Recovered/Resolved]
  - Suicidal ideation [Recovered/Resolved]
  - Parkinsonism [Recovered/Resolved with Sequelae]
  - Nervous system disorder [Recovered/Resolved with Sequelae]

NARRATIVE: CASE EVENT DATE: 20180505
